FAERS Safety Report 5444464-3 (Version None)
Quarter: 2007Q3

REPORT INFORMATION
  Report Type: 
  Country: None (occurrence: None)
  Receive Date: 20070906
  Receipt Date: 20070905
  Transmission Date: 20080115
  Serious: Yes (Hospitalization)
  Sender: FDA-Public Use
  Company Number: FR-BRISTOL-MYERS SQUIBB COMPANY-13898127

PATIENT
  Age: 49 Year
  Sex: Female

DRUGS (4)
  1. MITOMYCIN-C BULK POWDER [Suspect]
     Indication: ANAL CANCER
     Route: 042
     Dates: start: 20070611, end: 20070611
  2. 5-FU [Suspect]
     Indication: ANAL CANCER
     Route: 042
     Dates: start: 20070611, end: 20070615
  3. ALIZAPRIDE [Concomitant]
     Route: 042
     Dates: start: 20070611, end: 20070611
  4. METHYLPREDNISOLONE 16MG TAB [Concomitant]
     Route: 042
     Dates: start: 20070611, end: 20070611

REACTIONS (5)
  - APHASIA [None]
  - FACIAL PALSY [None]
  - HYPOAESTHESIA [None]
  - NEUROTOXICITY [None]
  - PARESIS [None]
